FAERS Safety Report 9671826 (Version 1)
Quarter: 2013Q4

REPORT INFORMATION
  Report Type: Spontaneous
  Country: US (occurrence: None)
  Receive Date: 20131105
  Receipt Date: 20131105
  Transmission Date: 20140711
  Serious: Yes (Death)
  Sender: FDA-Public Use
  Company Number: None

PATIENT
  Age: 64 Year
  Sex: Female

DRUGS (2)
  1. ALBUTEROL SULFATE [Suspect]
     Indication: POST PROCEDURAL INFECTION
     Dosage: 1 NEB, QID, RESPIRATORY
     Dates: start: 20130921, end: 20130926
  2. ALBUTEROL SULFATE [Suspect]
     Indication: PNEUMONIA
     Dosage: 1 NEB, QID, RESPIRATORY
     Dates: start: 20130921, end: 20130926

REACTIONS (1)
  - Arrhythmia [None]
